FAERS Safety Report 13844155 (Version 1)
Quarter: 2017Q3

REPORT INFORMATION
  Report Type: Spontaneous
  Country: US (occurrence: US)
  Receive Date: 20170808
  Receipt Date: 20170808
  Transmission Date: 20171127
  Serious: No
  Sender: FDA-Public Use
  Company Number: US-PFIZER INC-2017342448

PATIENT
  Sex: Female

DRUGS (1)
  1. DIDREX [Suspect]
     Active Substance: BENZPHETAMINE HYDROCHLORIDE
     Indication: MYASTHENIA GRAVIS
     Dosage: 50 MG, UNK

REACTIONS (2)
  - Product use in unapproved indication [Unknown]
  - Feeling abnormal [Unknown]
